FAERS Safety Report 24943582 (Version 1)
Quarter: 2025Q1

REPORT INFORMATION
  Report Type: Report from Study
  Country: PT (occurrence: PT)
  Receive Date: 20250207
  Receipt Date: 20250207
  Transmission Date: 20250409
  Serious: Yes (Death, Life-Threatening, Hospitalization)
  Sender: SANDOZ
  Company Number: PT-002147023-NVSC2024PT059753

PATIENT
  Age: 72 Year
  Sex: Male
  Weight: 63 kg

DRUGS (17)
  1. DOCETAXEL [Suspect]
     Active Substance: DOCETAXEL
     Indication: Non-small cell lung cancer metastatic
     Route: 042
     Dates: start: 20231220
  2. DOCETAXEL [Suspect]
     Active Substance: DOCETAXEL
     Indication: K-ras gene mutation
  3. ALFUZOSIN [Concomitant]
     Active Substance: ALFUZOSIN
     Indication: Benign prostatic hyperplasia
     Route: 065
     Dates: start: 20231122
  4. CALCIUM CARBONATE [Concomitant]
     Active Substance: CALCIUM CARBONATE
     Indication: General physical condition
     Route: 065
     Dates: start: 20230915
  5. CHOLECALCIFEROL [Concomitant]
     Active Substance: CHOLECALCIFEROL
     Indication: General physical condition
     Route: 065
     Dates: start: 20230915
  6. EDOXABAN [Concomitant]
     Active Substance: EDOXABAN
     Indication: Thrombosis
     Route: 065
     Dates: start: 20231107
  7. ESOMEPRAZOLE [Concomitant]
     Active Substance: ESOMEPRAZOLE
     Indication: Gastrooesophageal reflux disease
     Route: 065
     Dates: start: 2003
  8. FILGRASTIM [Concomitant]
     Active Substance: FILGRASTIM
     Indication: Prophylaxis
     Route: 065
     Dates: start: 20240314
  9. POLYETHYLENE GLYCOL 4000 [Concomitant]
     Active Substance: POLYETHYLENE GLYCOL 4000
     Indication: Constipation
     Route: 065
     Dates: start: 20240313
  10. MEGESTROL [Concomitant]
     Active Substance: MEGESTROL
     Indication: General physical condition
     Route: 065
     Dates: start: 20231009
  11. MORPHINE [Concomitant]
     Active Substance: MORPHINE
     Indication: Product used for unknown indication
     Route: 065
     Dates: start: 20240318, end: 20240318
  12. MORPHINE [Concomitant]
     Active Substance: MORPHINE
     Route: 065
     Dates: start: 20240319
  13. PANTOPRAZOLE [Concomitant]
     Active Substance: PANTOPRAZOLE
     Indication: Haemorrhage prophylaxis
     Route: 065
     Dates: start: 20240318
  14. PERINDOPRIL [Concomitant]
     Active Substance: PERINDOPRIL
     Indication: Hypertension
     Route: 065
     Dates: start: 2009
  15. PREDNISOLONE [Concomitant]
     Active Substance: PREDNISOLONE
     Indication: Non-small cell lung cancer
     Route: 065
     Dates: start: 20240312, end: 20240314
  16. SOLIFENACIN SUCCINATE [Concomitant]
     Active Substance: SOLIFENACIN SUCCINATE
     Indication: Benign prostatic hyperplasia
     Route: 065
     Dates: start: 20231122
  17. TAPENTADOL [Concomitant]
     Active Substance: TAPENTADOL
     Indication: Pain prophylaxis
     Route: 065
     Dates: start: 202308

REACTIONS (6)
  - Septic shock [Fatal]
  - Vomiting [Not Recovered/Not Resolved]
  - Bacteraemia [Recovered/Resolved]
  - Renal failure [Not Recovered/Not Resolved]
  - Hypotension [Recovered/Resolved]
  - Dyspnoea [Recovered/Resolved]

NARRATIVE: CASE EVENT DATE: 20240317
